FAERS Safety Report 7943486-8 (Version None)
Quarter: 2011Q4

REPORT INFORMATION
  Report Type: 
  Country: None (occurrence: None)
  Receive Date: 20111128
  Receipt Date: 20111121
  Transmission Date: 20120403
  Serious: Yes (Hospitalization)
  Sender: FDA-Public Use
  Company Number: PHHO2011DE019575

PATIENT
  Sex: Female
  Weight: 65 kg

DRUGS (6)
  1. AMITRIPTYLINE HCL [Concomitant]
     Indication: MIGRAINE
     Dosage: 25 MG, QD
     Dates: start: 20101108
  2. SUMATRIPTAN [Concomitant]
     Indication: MIGRAINE
     Dosage: 100 MG, UNK
     Dates: start: 20101029
  3. EVEROLIMUS [Suspect]
     Indication: LIVER TRANSPLANT
     Dosage: 2 MG, QD
     Route: 048
     Dates: start: 20111107
  4. CETRIZIN [Concomitant]
     Indication: PRURITUS
     Dosage: 10 MG, QD
     Dates: start: 20110201
  5. BONDIOL [Concomitant]
     Indication: OSTEOMALACIA
     Dosage: 1 UG, QD
     Dates: start: 20100213
  6. TACROLIMUS [Suspect]
     Indication: LIVER TRANSPLANT
     Dosage: 2 MG, QD
     Route: 048
     Dates: start: 20110824

REACTIONS (1)
  - MIGRAINE [None]
